FAERS Safety Report 19601437 (Version 1)
Quarter: 2021Q3

REPORT INFORMATION
  Report Type: Spontaneous
  Country: GB (occurrence: GB)
  Receive Date: 20210722
  Receipt Date: 20210722
  Transmission Date: 20211014
  Serious: Yes (Hospitalization, Other)
  Sender: FDA-Public Use
  Company Number: GB-SA-2021SA235721

PATIENT
  Age: 43 Year
  Sex: Female

DRUGS (38)
  1. PACLITAXEL. [Suspect]
     Active Substance: PACLITAXEL
     Dosage: 450 MG, Q3W
     Route: 042
     Dates: start: 20150820, end: 20150820
  2. PACLITAXEL. [Suspect]
     Active Substance: PACLITAXEL
     Dosage: 340 MG, Q3W
     Route: 042
     Dates: start: 20151022, end: 20151022
  3. TRASTUZUMAB. [Suspect]
     Active Substance: TRASTUZUMAB
     Dosage: 420 MG, BIW (420 MG, Q3W)
     Route: 042
     Dates: start: 20150709, end: 20150709
  4. TRASTUZUMAB. [Suspect]
     Active Substance: TRASTUZUMAB
     Dosage: 420MG (MAINTAINANCE DOSE.)
     Route: 042
     Dates: start: 20150709
  5. TRASTUZUMAB. [Suspect]
     Active Substance: TRASTUZUMAB
     Indication: BREAST CANCER METASTATIC
     Dosage: 567 MG, QD (LOADING DOSE)
     Route: 041
     Dates: start: 20150516, end: 20150516
  6. PACLITAXEL. [Suspect]
     Active Substance: PACLITAXEL
     Indication: BREAST CANCER METASTATIC
     Dosage: 450 MG, QW3 (LOADING DOSE)
     Route: 042
     Dates: start: 20150730, end: 20150730
  7. TRASTUZUMAB. [Suspect]
     Active Substance: TRASTUZUMAB
     Indication: BREAST CANCER METASTATIC
     Dosage: 567 MG, QD (LOADING DOSE)
     Route: 042
     Dates: start: 20150516, end: 20150516
  8. TRASTUZUMAB. [Suspect]
     Active Substance: TRASTUZUMAB
     Dosage: 420MG (MAINTAINANCE DOSE.)
     Route: 042
     Dates: start: 20150709, end: 20150709
  9. PERTUZUMAB. [Suspect]
     Active Substance: PERTUZUMAB
     Dosage: LOADING DOSE
     Route: 042
     Dates: start: 20150615, end: 20150615
  10. PERTUZUMAB. [Suspect]
     Active Substance: PERTUZUMAB
     Dosage: MAINTAINACE DOSE
     Route: 042
     Dates: start: 20150709
  11. COCODAMOL [Concomitant]
     Active Substance: ACETAMINOPHEN\CODEINE PHOSPHATE
     Indication: PRODUCT USED FOR UNKNOWN INDICATION
     Dosage: 2000 MG, QD
     Route: 048
  12. METFORMIN [Concomitant]
     Active Substance: METFORMIN HYDROCHLORIDE
     Dosage: 1 G,QD
     Route: 048
  13. DOCETAXEL. [Suspect]
     Active Substance: DOCETAXEL
     Indication: BREAST CANCER METASTATIC
     Dosage: 130 MG, Q3W
     Route: 042
     Dates: start: 20150616, end: 20150616
  14. DOCETAXEL. [Suspect]
     Active Substance: DOCETAXEL
     Dosage: 130MG
     Route: 042
     Dates: start: 20150616, end: 20150616
  15. DOCETAXEL. [Suspect]
     Active Substance: DOCETAXEL
     Dosage: 130 MG, BIW (130 MG, Q3W)
     Route: 042
     Dates: start: 20150709, end: 20150709
  16. PACLITAXEL. [Suspect]
     Active Substance: PACLITAXEL
     Dosage: 340 MG, Q3W
     Route: 042
     Dates: start: 20150910, end: 20150910
  17. CO?AMOXICLAV [AMOXICILLIN;CLAVULANATE POTASSIUM] [Concomitant]
     Active Substance: AMOXICILLIN\CLAVULANATE POTASSIUM
     Indication: COUGH
     Dosage: UNK (COUGH WITH YELLOW SPUTUM)
     Route: 048
     Dates: start: 20180110, end: 20180117
  18. DOCETAXEL. [Suspect]
     Active Substance: DOCETAXEL
     Dosage: 130 MG, Q3W
     Route: 042
     Dates: start: 20150616, end: 20150709
  19. PACLITAXEL. [Suspect]
     Active Substance: PACLITAXEL
     Dosage: LOADING DOSE (450 MG)
     Route: 042
     Dates: start: 20150730, end: 20150730
  20. PACLITAXEL. [Suspect]
     Active Substance: PACLITAXEL
     Dosage: 450 MG, BIW (450 MG, Q3W)
     Route: 042
     Dates: start: 20150820, end: 20150820
  21. TRASTUZUMAB. [Suspect]
     Active Substance: TRASTUZUMAB
     Dosage: 420MG (MAINTAINANCE DOSE.)
     Route: 042
     Dates: start: 20150709, end: 20150709
  22. PERTUZUMAB. [Suspect]
     Active Substance: PERTUZUMAB
     Indication: BREAST CANCER METASTATIC
     Dosage: 420 MG, Q3W (MAINTAINANCE DOSE)
     Route: 042
     Dates: start: 20150709
  23. CHLORPHENAMINE [Concomitant]
     Active Substance: CHLORPHENIRAMINE MALEATE
     Indication: PRODUCT USED FOR UNKNOWN INDICATION
     Dosage: 10 MG,UNK
     Route: 042
     Dates: start: 20150709, end: 20150709
  24. DOCETAXEL. [Suspect]
     Active Substance: DOCETAXEL
     Dosage: 260 MG
     Route: 065
  25. PACLITAXEL. [Suspect]
     Active Substance: PACLITAXEL
     Dosage: 340 MG, Q3W
     Route: 042
     Dates: start: 20150910, end: 20151022
  26. DOMPERIDONE [Concomitant]
     Active Substance: DOMPERIDONE
     Dosage: 30 MG, QD
     Route: 048
     Dates: start: 20190709
  27. METFORMIN [Concomitant]
     Active Substance: METFORMIN HYDROCHLORIDE
     Indication: DIABETES MELLITUS
     Dosage: 2 G,QD
     Route: 048
  28. TRAMADOL. [Concomitant]
     Active Substance: TRAMADOL
     Dosage: 100 MG, QD
     Route: 048
  29. PACLITAXEL. [Suspect]
     Active Substance: PACLITAXEL
     Dosage: LOADING DOSE
     Route: 042
     Dates: start: 20150820, end: 20150820
  30. PACLITAXEL. [Suspect]
     Active Substance: PACLITAXEL
     Dosage: 450 MG,3 (450 MG)
     Route: 042
     Dates: start: 20150730, end: 20150730
  31. TRASTUZUMAB. [Suspect]
     Active Substance: TRASTUZUMAB
     Dosage: 567 MG (LOADING DOSE) (TOTAL)
     Route: 041
     Dates: start: 20150616, end: 20150616
  32. TRASTUZUMAB. [Suspect]
     Active Substance: TRASTUZUMAB
     Dosage: 420 MG, TIW (MAINTAINANCE DOSE)
     Route: 042
     Dates: start: 20150709, end: 20150709
  33. PACLITAXEL. [Suspect]
     Active Substance: PACLITAXEL
     Dosage: 450 MG, Q3W
     Route: 042
     Dates: start: 20150730, end: 20150820
  34. TRASTUZUMAB. [Suspect]
     Active Substance: TRASTUZUMAB
     Dosage: 420 MG, Q3W (MAINTENANCE DOSE)
     Route: 042
     Dates: start: 20150709
  35. DOMPERIDONE [Concomitant]
     Active Substance: DOMPERIDONE
     Indication: PRODUCT USED FOR UNKNOWN INDICATION
     Dosage: 10 MG,QD
     Route: 048
     Dates: start: 20150709
  36. TRAMADOL. [Concomitant]
     Active Substance: TRAMADOL
     Indication: PAIN
     Dosage: 50 MG,QD
     Route: 048
  37. COCODAMOL [Concomitant]
     Active Substance: ACETAMINOPHEN\CODEINE PHOSPHATE
     Dosage: 500 MG,QD
     Route: 048
  38. HYDROCORTISONE. [Concomitant]
     Active Substance: HYDROCORTISONE
     Indication: PRODUCT USED FOR UNKNOWN INDICATION
     Dosage: 100 MG,UNK
     Route: 042
     Dates: start: 20150709, end: 20150709

REACTIONS (8)
  - Swelling [Not Recovered/Not Resolved]
  - Febrile neutropenia [Recovered/Resolved]
  - Diarrhoea [Recovered/Resolved]
  - Chest pain [Not Recovered/Not Resolved]
  - Neuropathy peripheral [Recovered/Resolved]
  - Fatigue [Recovered/Resolved]
  - Mucosal inflammation [Recovered/Resolved]
  - Chest pain [Recovered/Resolved]

NARRATIVE: CASE EVENT DATE: 20150908
